FAERS Safety Report 5236604-6 (Version None)
Quarter: 2007Q1

REPORT INFORMATION
  Report Type: 
  Country: None (occurrence: None)
  Receive Date: 20070208
  Receipt Date: 20070125
  Transmission Date: 20070707
  Serious: Yes (Hospitalization)
  Sender: FDA-Public Use
  Company Number: 2006PV025011

PATIENT
  Age: 61 Year
  Sex: Female
  Weight: 118.8424 kg

DRUGS (4)
  1. BYETTA [Suspect]
     Indication: DIABETES MELLITUS NON-INSULIN-DEPENDENT
     Dosage: SEE IMAGE
     Route: 058
     Dates: start: 20060201, end: 20060303
  2. BYETTA [Suspect]
     Indication: DIABETES MELLITUS NON-INSULIN-DEPENDENT
     Dosage: SEE IMAGE
     Route: 058
     Dates: start: 20060303
  3. AMARYL [Concomitant]
  4. ZOCOR [Concomitant]

REACTIONS (9)
  - ABDOMINAL HERNIA [None]
  - HAEMORRHAGE [None]
  - HYPOTENSION [None]
  - HYSTERECTOMY [None]
  - OVARIAN CYST [None]
  - OVARIAN MASS [None]
  - PAIN [None]
  - POST PROCEDURAL HAEMORRHAGE [None]
  - WOUND DECOMPOSITION [None]
